FAERS Safety Report 21488897 (Version 2)
Quarter: 2022Q4

REPORT INFORMATION
  Report Type: Spontaneous
  Country: US (occurrence: US)
  Receive Date: 20221021
  Receipt Date: 20221107
  Transmission Date: 20230113
  Serious: Yes (Hospitalization)
  Sender: FDA-Public Use
  Company Number: US-HETERO-HET2022US02598

PATIENT
  Age: 35 Year
  Sex: Male

DRUGS (1)
  1. LEVOFLOXACIN [Suspect]
     Active Substance: LEVOFLOXACIN
     Indication: Post procedural persistent drain fluid
     Dosage: 2 DOSAGE FORM
     Route: 065

REACTIONS (2)
  - Granulomatosis with polyangiitis [Recovering/Resolving]
  - Product use in unapproved indication [Unknown]
